FAERS Safety Report 18073792 (Version 1)
Quarter: 2020Q3

REPORT INFORMATION
  Report Type: Report from Study
  Country: US (occurrence: US)
  Receive Date: 20200727
  Receipt Date: 20200727
  Transmission Date: 20201103
  Serious: Yes (Hospitalization)
  Sender: FDA-Public Use
  Company Number: US-GLAXOSMITHKLINE-US2020AMR101010

PATIENT
  Age: 83 Year
  Sex: Female

DRUGS (1)
  1. NIRAPARIB [Suspect]
     Active Substance: NIRAPARIB
     Indication: OVARIAN CANCER
     Dosage: 200 MG, DAILY
     Route: 065
     Dates: start: 20200515

REACTIONS (5)
  - Decreased appetite [Unknown]
  - Fall [Unknown]
  - Nausea [Unknown]
  - Arthralgia [Unknown]
  - Underdose [Unknown]

NARRATIVE: CASE EVENT DATE: 20200714
